FAERS Safety Report 4453803-1 (Version None)
Quarter: 2004Q3

REPORT INFORMATION
  Report Type: 
  Country: None (occurrence: None)
  Receive Date: 20040920
  Receipt Date: 20040908
  Transmission Date: 20050211
  Serious: Yes (Death)
  Sender: FDA-Public Use
  Company Number: PHFR2004GB03429

PATIENT
  Age: 52 Year
  Sex: Female

DRUGS (3)
  1. SIMULECT [Suspect]
     Indication: PSORIASIS
     Dosage: UNK, ONCE/SINGLE
  2. SIMULECT [Suspect]
     Dosage: UNK, ONCE/SINGLE
  3. ULTRAVIOLET LIGHT [Concomitant]

REACTIONS (4)
  - ASPARTATE AMINOTRANSFERASE INCREASED [None]
  - HEPATIC FAILURE [None]
  - MULTI-ORGAN FAILURE [None]
  - PROTHROMBIN TIME PROLONGED [None]
